FAERS Safety Report 6916060-X (Version None)
Quarter: 2010Q3

REPORT INFORMATION
  Report Type: 
  Country: None (occurrence: None)
  Receive Date: 20100810
  Receipt Date: 20100803
  Transmission Date: 20110219
  Serious: No
  Sender: FDA-Public Use
  Company Number: US-BIOGENIDEC-2010BI006745

PATIENT
  Age: 58 Year
  Sex: Male

DRUGS (1)
  1. TYSABRI [Suspect]
     Indication: MULTIPLE SCLEROSIS
     Route: 042
     Dates: start: 20091008, end: 20100128

REACTIONS (6)
  - DIARRHOEA [None]
  - FEELING COLD [None]
  - HEADACHE [None]
  - MUSCULAR WEAKNESS [None]
  - TREMOR [None]
  - URINARY INCONTINENCE [None]
